FAERS Safety Report 10261548 (Version 2)
Quarter: 2014Q2

REPORT INFORMATION
  Report Type: Report from Study
  Country: US (occurrence: US)
  Receive Date: 20140626
  Receipt Date: 20140626
  Transmission Date: 20141212
  Serious: Yes (Hospitalization)
  Sender: FDA-Public Use
  Company Number: PHEH2014US011888

PATIENT
  Sex: Female

DRUGS (3)
  1. CLOZARIL [Suspect]
     Dosage: UNK
     Dates: start: 1990
  2. CLOZARIL [Suspect]
     Dosage: 300 MG, UNK
  3. CLOZAPINE [Suspect]
     Dosage: UNK UKN, UNK

REACTIONS (3)
  - Suicide attempt [Unknown]
  - Depression [Unknown]
  - White blood cell count decreased [Unknown]
